FAERS Safety Report 4977122-X (Version None)
Quarter: 2006Q2

REPORT INFORMATION
  Report Type: 
  Country: None (occurrence: None)
  Receive Date: 20060413
  Receipt Date: 20060328
  Transmission Date: 20061013
  Serious: Yes (Other)
  Sender: FDA-Public Use
  Company Number: 2006-02-0300

PATIENT
  Age: 39 Year
  Sex: Female
  Weight: 100.2449 kg

DRUGS (6)
  1. REBETOL [Suspect]
     Dosage: 1200 MG QD ORAL
     Route: 048
     Dates: start: 20010201, end: 20020101
  2. INTRON A [Suspect]
     Dosage: 3 MIU TIW SUBCUTANEOUS
     Route: 058
     Dates: start: 20010202, end: 20020101
  3. ZOLOFT [Concomitant]
  4. CELEXA [Concomitant]
  5. AMBIEN [Concomitant]
  6. FIORINAL [Concomitant]

REACTIONS (13)
  - AGITATION [None]
  - ALOPECIA [None]
  - DEPRESSION [None]
  - DISTURBANCE IN ATTENTION [None]
  - FATIGUE [None]
  - FIBROMYALGIA [None]
  - INFLUENZA [None]
  - INFLUENZA LIKE ILLNESS [None]
  - INSOMNIA [None]
  - IRRITABILITY [None]
  - IRRITABLE BOWEL SYNDROME [None]
  - PHOTOSENSITIVITY REACTION [None]
  - WEIGHT DECREASED [None]
